FAERS Safety Report 12947789 (Version 1)
Quarter: 2016Q4

REPORT INFORMATION
  Report Type: Spontaneous
  Country: JP (occurrence: JP)
  Receive Date: 20161116
  Receipt Date: 20161116
  Transmission Date: 20170207
  Serious: Yes (Life-Threatening, Other)
  Sender: FDA-Public Use
  Company Number: JP-PFIZER INC-2016526753

PATIENT

DRUGS (3)
  1. ECARD [Suspect]
     Active Substance: CANDESARTAN CILEXETIL\HYDROCHLOROTHIAZIDE
     Indication: HYPERTENSION
     Dosage: 1 DF, 1X/DAY
     Route: 048
  2. CARDENALIN [Suspect]
     Active Substance: DOXAZOSIN MESYLATE
     Indication: HYPERTENSION
     Dosage: 4 MG, 1X/DAY
     Route: 048
  3. ADALAT [Suspect]
     Active Substance: NIFEDIPINE
     Indication: HYPERTENSION
     Dosage: 5 MG, AS NEEDED
     Route: 048

REACTIONS (5)
  - Renal failure [Unknown]
  - Cerebral infarction [Unknown]
  - Cerebral haemorrhage [Unknown]
  - Myocardial infarction [Unknown]
  - Drug effect incomplete [Unknown]
